FAERS Safety Report 11740770 (Version 2)
Quarter: 2016Q3

REPORT INFORMATION
  Report Type: Spontaneous
  Country: US (occurrence: US)
  Receive Date: 20151114
  Receipt Date: 20160826
  Transmission Date: 20161109
  Serious: No
  Sender: FDA-Public Use
  Company Number: US-BRISTOL-MYERS SQUIBB COMPANY-BMS-2015-079095

PATIENT
  Age: 9 Year
  Sex: Male

DRUGS (1)
  1. SPRYCEL [Suspect]
     Active Substance: DASATINIB
     Indication: CHRONIC MYELOID LEUKAEMIA
     Dosage: 70 MG, UNK
     Route: 048

REACTIONS (4)
  - Pain [Unknown]
  - Abdominal pain upper [Unknown]
  - Drug administered to patient of inappropriate age [Unknown]
  - Headache [Unknown]
